FAERS Safety Report 24905144 (Version 1)
Quarter: 2025Q1

REPORT INFORMATION
  Report Type: Spontaneous
  Country: US (occurrence: None)
  Receive Date: 20250130
  Receipt Date: 20250130
  Transmission Date: 20250408
  Serious: Yes (Death)
  Sender: FDA-CTU
  Company Number: None

PATIENT
  Sex: Female

DRUGS (1)
  1. CAPECITABINE [Suspect]
     Active Substance: CAPECITABINE
     Indication: Pancreatic carcinoma
     Dosage: OTHER QUANTITY : 1000/1500 MG;?FREQUENCY : TWICE A DAY;?
     Route: 048
     Dates: start: 202412

REACTIONS (2)
  - Pancreatic carcinoma [None]
  - Malignant neoplasm progression [None]
